FAERS Safety Report 5788577 (Version 6)
Quarter: 2014Q1

REPORT INFORMATION
  Report Type: Report from Study
  Country: US (occurrence: US)
  Receive Date: 20050505
  Receipt Date: 20140311
  Transmission Date: 20141002
  Serious: Yes (Hospitalization, Other)
  Sender: FDA-Public Use
  Company Number: US-NOVOPROD-243765

PATIENT
  Age: 31 Year
  Sex: Female
  Weight: 70.9 kg

DRUGS (13)
  1. NOVOSEVEN [Suspect]
     Indication: PROCEDURAL HAEMORRHAGE
     Dosage: 90 UG/KG Q2H
     Dates: start: 20030210, end: 20030220
  2. PLASMA, FRESH FROZEN [Concomitant]
     Indication: PROCEDURAL HAEMORRHAGE
     Dosage: 1 ML/KG, PRN (6 DOSES TOTAL)
     Dates: start: 20030207, end: 20030210
  3. PLATELETS [Concomitant]
     Indication: PROCEDURAL HAEMORRHAGE
  4. PLATELETS [Concomitant]
     Indication: PROCEDURAL HAEMORRHAGE
  5. CYTOXAN [Concomitant]
     Indication: IMMUNOSUPPRESSION
     Dosage: 1 MG/KG, EVERY 3 WEEKS
     Route: 042
     Dates: start: 20030211, end: 20050222
  6. PREDNISONE [Concomitant]
     Indication: ILL-DEFINED DISORDER
     Dosage: 80 MG, QD
     Dates: start: 20030211
  7. CHEMOTHERAPY NOS [Concomitant]
     Indication: NEOPLASM MALIGNANT
  8. ANALGESICS [Concomitant]
     Indication: ILL-DEFINED DISORDER
  9. ANTIHYPERTENSIVES [Concomitant]
     Indication: ILL-DEFINED DISORDER
  10. GASTROINTESTINAL MEDICATION NOS [Concomitant]
     Indication: ILL-DEFINED DISORDER
  11. ALLERGY MEDICATION [Concomitant]
     Indication: ILL-DEFINED DISORDER
  12. VITAMINS [Concomitant]
     Indication: ILL-DEFINED DISORDER
  13. BLOOD CELLS, PACKED HUMAN [Concomitant]
     Indication: PROCEDURAL HAEMORRHAGE
     Dosage: 24 UNITS, UNK
     Dates: start: 20030207, end: 200302

REACTIONS (1)
  - Cerebrovascular accident [Recovered/Resolved]
